FAERS Safety Report 16749903 (Version 4)
Quarter: 2020Q4

REPORT INFORMATION
  Report Type: Report from Study
  Country: BR (occurrence: BR)
  Receive Date: 20190828
  Receipt Date: 20201009
  Transmission Date: 20210113
  Serious: Yes (Disabling, Other)
  Sender: FDA-Public Use
  Company Number: PHHY2019BR199086

PATIENT
  Age: 62 Year
  Sex: Male

DRUGS (2)
  1. COSENTYX [Suspect]
     Active Substance: SECUKINUMAB
     Indication: ANKYLOSING SPONDYLITIS
     Dosage: 150 MG, UNK
     Route: 065
     Dates: start: 20190214
  2. COSENTYX [Suspect]
     Active Substance: SECUKINUMAB
     Dosage: UNK
     Route: 065
     Dates: start: 20190814

REACTIONS (9)
  - Asthenia [Unknown]
  - Retinal detachment [Recovering/Resolving]
  - Ankylosing spondylitis [Unknown]
  - Toxoplasmosis [Recovered/Resolved]
  - Pain [Recovering/Resolving]
  - Decreased immune responsiveness [Unknown]
  - Visual impairment [Unknown]
  - Cataract [Recovering/Resolving]
  - Uveitis [Not Recovered/Not Resolved]

NARRATIVE: CASE EVENT DATE: 201908
